FAERS Safety Report 20905933 (Version 1)
Quarter: 2022Q2

REPORT INFORMATION
  Report Type: Spontaneous
  Country: JP (occurrence: JP)
  Receive Date: 20220602
  Receipt Date: 20220602
  Transmission Date: 20220721
  Serious: Yes (Other)
  Sender: FDA-Public Use
  Company Number: JP-MSD-M2022-14412

PATIENT
  Age: 7 Decade
  Sex: Male

DRUGS (5)
  1. KEYTRUDA [Suspect]
     Active Substance: PEMBROLIZUMAB
     Indication: Oesophageal carcinoma
     Dosage: 200 MILLIGRAM, Q3W
     Route: 041
     Dates: start: 20211216, end: 2022
  2. FLUOROURACIL [Concomitant]
     Active Substance: FLUOROURACIL
     Dosage: 640 MILLIGRAM, Q3W
     Route: 041
     Dates: start: 20211216
  3. FLUOROURACIL [Concomitant]
     Active Substance: FLUOROURACIL
     Dosage: 480 MILLIGRAM, Q3W
     Route: 041
     Dates: start: 2022, end: 2022
  4. CISPLATIN [Concomitant]
     Active Substance: CISPLATIN
     Dosage: 64 MILLIGRAM, Q3W
     Route: 041
     Dates: start: 20211216
  5. CISPLATIN [Concomitant]
     Active Substance: CISPLATIN
     Dosage: 48 MILLIGRAM, Q3W
     Route: 041
     Dates: start: 2022, end: 20220331

REACTIONS (1)
  - Neutropenia [Recovered/Resolved]

NARRATIVE: CASE EVENT DATE: 20220201
